FAERS Safety Report 8366470-1 (Version None)
Quarter: 2012Q2

REPORT INFORMATION
  Report Type: 
  Country: None (occurrence: None)
  Receive Date: 20120517
  Receipt Date: 20120511
  Transmission Date: 20120825
  Serious: Yes (Hospitalization)
  Sender: FDA-Public Use
  Company Number: US-BAYER-2012-048165

PATIENT
  Age: 28 Year
  Sex: Female
  Weight: 101.13 kg

DRUGS (2)
  1. YASMIN [Suspect]
     Indication: MENSTRUATION IRREGULAR
     Dosage: UNK
  2. AUGMENTIN [Concomitant]
     Indication: OTITIS MEDIA
     Dosage: UNK

REACTIONS (2)
  - PULMONARY EMBOLISM [None]
  - DEEP VEIN THROMBOSIS [None]
